FAERS Safety Report 20181040 (Version 2)
Quarter: 2022Q1

REPORT INFORMATION
  Report Type: Report from Study
  Country: BR (occurrence: BR)
  Receive Date: 20211214
  Receipt Date: 20220126
  Transmission Date: 20220423
  Serious: Yes (Hospitalization, Other)
  Sender: FDA-Public Use
  Company Number: BR-NOVARTISPH-NVSC2021BR283964

PATIENT
  Age: 93 Year
  Sex: Female

DRUGS (1)
  1. DIOVAN HCT [Suspect]
     Active Substance: HYDROCHLOROTHIAZIDE\VALSARTAN
     Indication: Product used for unknown indication
     Dosage: 80/12.5 MG (STARTED FEW YEARS AGO)
     Route: 065

REACTIONS (5)
  - Influenza [Unknown]
  - Dementia Alzheimer^s type [Unknown]
  - Throat irritation [Unknown]
  - Pain [Unknown]
  - Cough [Unknown]
